FAERS Safety Report 5033708-8 (Version None)
Quarter: 2006Q2

REPORT INFORMATION
  Report Type: 
  Country: None (occurrence: None)
  Receive Date: 20060620
  Receipt Date: 20060619
  Transmission Date: 20061013
  Serious: Yes (Disabling)
  Sender: FDA-Public Use
  Company Number: 223386

PATIENT
  Age: 50 Year
  Sex: Female

DRUGS (2)
  1. HERCEPTIN [Suspect]
     Indication: BREAST CANCER
     Dosage: 300 MG, SINGLE, IV BOLUS; 150 MG, 1/WEEK, INTRAVENOUS
     Route: 040
     Dates: start: 20060101
  2. HERCEPTIN [Suspect]
     Indication: BREAST CANCER
     Dosage: 300 MG, SINGLE, IV BOLUS; 150 MG, 1/WEEK, INTRAVENOUS
     Route: 040
     Dates: start: 20060106

REACTIONS (2)
  - ACTIVITIES OF DAILY LIVING IMPAIRED [None]
  - ARTHRALGIA [None]
